FAERS Safety Report 7230740-0 (Version None)
Quarter: 2011Q1

REPORT INFORMATION
  Report Type: 
  Country: None (occurrence: None)
  Receive Date: 20110118
  Receipt Date: 20110114
  Transmission Date: 20110831
  Serious: No
  Sender: FDA-Public Use
  Company Number: US-PFIZER INC-2011010222

PATIENT
  Sex: Female
  Weight: 47.6 kg

DRUGS (5)
  1. PROZAC [Concomitant]
     Indication: ANXIETY DISORDER
     Dosage: UNK
  2. INDERAL [Concomitant]
     Indication: TREMOR
     Dosage: UNK
  3. CALCIUM [Concomitant]
     Indication: SUPPLEMENTATION THERAPY
     Dosage: UNK
  4. PREVACID [Concomitant]
     Indication: DYSPEPSIA
     Dosage: UNK
  5. PREMPRO [Suspect]
     Indication: MENOPAUSAL SYMPTOMS
     Dosage: 0.3/1.5 MG, DAILY
     Route: 048
     Dates: start: 20100201

REACTIONS (1)
  - ALOPECIA [None]
